FAERS Safety Report 4993875-9 (Version None)
Quarter: 2006Q2

REPORT INFORMATION
  Report Type: 
  Country: None (occurrence: None)
  Receive Date: 20060504
  Receipt Date: 20060504
  Transmission Date: 20061013
  Serious: Yes (Hospitalization)
  Sender: FDA-Public Use
  Company Number: None

PATIENT
  Sex: Female

DRUGS (2)
  1. REVLIMID [Suspect]
     Indication: GASTRIC CANCER
     Dosage: 5 MILLIGRAMS QD X 14 DAYS PO
     Route: 048
     Dates: start: 20060418, end: 20060430
  2. DOCETAXEL [Suspect]
     Dosage: 90 ILLIGRAMS Q 21 DAYS IV DRIP
     Route: 041
     Dates: start: 20060418, end: 20060418

REACTIONS (1)
  - HOSPITALISATION [None]
